FAERS Safety Report 10081805 (Version 8)
Quarter: 2020Q1

REPORT INFORMATION
  Report Type: Report from Study
  Country: US (occurrence: US)
  Receive Date: 20140416
  Receipt Date: 20200115
  Transmission Date: 20200409
  Serious: Yes (Life-Threatening, Hospitalization, Other)
  Sender: FDA-Public Use
  Company Number: US-ACTELION-A-US2013-89344

PATIENT
  Age: 17 Year
  Sex: Male
  Weight: 67.12 kg

DRUGS (6)
  1. TRACLEER [Suspect]
     Active Substance: BOSENTAN
     Dosage: UNK
     Route: 048
  2. SILDENAFIL CITRATE. [Concomitant]
     Active Substance: SILDENAFIL CITRATE
  3. LEVETIRACETAM. [Concomitant]
     Active Substance: LEVETIRACETAM
     Dosage: 750 MG, BID
     Route: 065
  4. TRACLEER [Suspect]
     Active Substance: BOSENTAN
     Indication: PULMONARY ARTERIAL HYPERTENSION
     Dosage: 125 MG, BID
     Route: 048
     Dates: start: 20060523
  5. ADCIRCA [Concomitant]
     Active Substance: TADALAFIL
  6. OXYGEN. [Concomitant]
     Active Substance: OXYGEN
     Dosage: 15 LITRES

REACTIONS (13)
  - Hypoxia [Unknown]
  - Oxygen saturation decreased [Unknown]
  - Seizure [Unknown]
  - Pulmonary hypertension [Unknown]
  - Dyspnoea [Unknown]
  - Mechanical ventilation [Unknown]
  - Dyspnoea exertional [Unknown]
  - Dizziness [Unknown]
  - Drug intolerance [Unknown]
  - Condition aggravated [Unknown]
  - Loss of consciousness [Unknown]
  - Blood calcium decreased [Unknown]
  - Syncope [Unknown]

NARRATIVE: CASE EVENT DATE: 20140330
